FAERS Safety Report 4337838-5 (Version None)
Quarter: 2004Q1

REPORT INFORMATION
  Report Type: 
  Country: None (occurrence: None)
  Receive Date: 20040326
  Receipt Date: 20030916
  Transmission Date: 20041129
  Serious: No
  Sender: FDA-Public Use
  Company Number: 2003UW08547

PATIENT
  Age: 78 Year
  Sex: Female
  Weight: 64.4108 kg

DRUGS (7)
  1. ATACAND [Suspect]
     Indication: HYPERTENSION
     Dosage: 8 MG QD PO
     Route: 048
  2. TOPROL-XL [Suspect]
     Dosage: 75 MG QD PO
     Route: 048
     Dates: start: 20030601
  3. ZESTRIL [Suspect]
     Dosage: 2.5 MG QD PO
     Dates: start: 20030601
  4. PLAVIX [Suspect]
     Dosage: 75 MG QD PO
     Route: 048
     Dates: start: 20030606, end: 20030704
  5. ZOCOR [Suspect]
     Dosage: 40 MG QD PO
     Route: 048
     Dates: start: 20030607
  6. PRILOSEC [Concomitant]
  7. ASPIRIN [Concomitant]

REACTIONS (2)
  - DYSGEUSIA [None]
  - MYOCARDIAL INFARCTION [None]
